FAERS Safety Report 10504898 (Version 1)
Quarter: 2014Q3

REPORT INFORMATION
  Report Type: Spontaneous
  Country: US (occurrence: None)
  Receive Date: 20140915
  Receipt Date: 20140915
  Transmission Date: 20150326
  Serious: Yes (Other)
  Sender: FDA-Public Use
  Company Number: PHEH2013US015601

PATIENT
  Age: 62 Year
  Sex: Male

DRUGS (4)
  1. DIOVAN [Suspect]
     Active Substance: VALSARTAN
     Dosage: 1 DF, QD (80 MG), ORAL
     Route: 048
  2. LIPITPOR (ATORVASTATIN CALCIUM) [Concomitant]
  3. XANAX [Concomitant]
     Active Substance: ALPRAZOLAM
  4. MULTI (ASCORBIC ACID, BIOTIN, CHROMIUM, COPPER, FOLIC ACID, MAGNESIUM, MANGANSESE, NICOTINAMIDE, PANOTHENIC ACID, POTASSIUM, PYRIDOXINE HYDROCHLORIDE, RETINOL, RIBOLFAVIN, SELENIUMM, THIAMINE, TOCOPHEROL, VITAMIN B12 NOS, ZINC) [Concomitant]

REACTIONS (3)
  - Blood pressure increased [None]
  - Drug ineffective [None]
  - Cough [None]
